FAERS Safety Report 4673140-X (Version None)
Quarter: 2005Q2

REPORT INFORMATION
  Report Type: 
  Country: None (occurrence: None)
  Receive Date: 20050524
  Receipt Date: 20050524
  Transmission Date: 20051028
  Serious: Yes (Congenital Anomaly)
  Sender: FDA-Public Use
  Company Number: None

PATIENT
  Sex: Male
  Weight: 127.0072 kg

DRUGS (2)
  1. SEROQUEL [Suspect]
     Indication: PSYCHOTIC DISORDER
     Dosage: 100ML  MORNING  HEMODIALYS  ; 400ML  NIGHT HEMODIALYS
     Route: 010
     Dates: start: 20020117, end: 20050523
  2. SEROQUEL [Suspect]
     Indication: SCHIZOPHRENIA
     Dosage: 100ML  MORNING  HEMODIALYS  ; 400ML  NIGHT HEMODIALYS
     Route: 010
     Dates: start: 20020117, end: 20050523

REACTIONS (2)
  - EYEBALL RUPTURE [None]
  - THINKING ABNORMAL [None]
